FAERS Safety Report 23154268 (Version 1)
Quarter: 2023Q4

REPORT INFORMATION
  Report Type: Spontaneous
  Country: ES (occurrence: ES)
  Receive Date: 20231107
  Receipt Date: 20231107
  Transmission Date: 20240109
  Serious: Yes (Life-Threatening, Hospitalization)
  Sender: FDA-Public Use
  Company Number: ES-AEMPS-1395878

PATIENT
  Age: 30 Year
  Sex: Male

DRUGS (1)
  1. ACETAMINOPHEN [Suspect]
     Active Substance: ACETAMINOPHEN
     Indication: Product used for unknown indication
     Dosage: INGESTION OF 3 GRAMS IN 6 HOURS.
     Route: 048
     Dates: start: 20230108

REACTIONS (4)
  - Hyperbilirubinaemia [Recovered/Resolved]
  - Coagulopathy [Recovered/Resolved]
  - Abdominal pain lower [Recovered/Resolved]
  - Hepatitis acute [Recovered/Resolved]

NARRATIVE: CASE EVENT DATE: 20230109
